FAERS Safety Report 8045254-8 (Version None)
Quarter: 2012Q1

REPORT INFORMATION
  Report Type: 
  Country: None (occurrence: None)
  Receive Date: 20120113
  Receipt Date: 20120110
  Transmission Date: 20120608
  Serious: Yes (Other)
  Sender: FDA-Public Use
  Company Number: GB-PFIZER INC-2012006951

PATIENT
  Age: 70 Year
  Sex: Female

DRUGS (1)
  1. ECALTA [Suspect]
     Indication: ANTIFUNGAL TREATMENT

REACTIONS (2)
  - URTICARIA [None]
  - ANAPHYLACTIC REACTION [None]
